FAERS Safety Report 8417372-3 (Version None)
Quarter: 2012Q2

REPORT INFORMATION
  Report Type: 
  Country: None (occurrence: None)
  Receive Date: 20120606
  Receipt Date: 20120529
  Transmission Date: 20120825
  Serious: Yes (Other)
  Sender: FDA-Public Use
  Company Number: FR-BAXTER-2012BAX006926

PATIENT
  Sex: Female

DRUGS (8)
  1. PREDNISOLONE [Suspect]
     Indication: PREMEDICATION
     Dosage: 1 TAB
     Route: 048
     Dates: start: 20120403, end: 20120403
  2. CYCLOPHOSPHAMIDE [Suspect]
     Indication: CHEMOTHERAPY
     Route: 042
     Dates: start: 20120403
  3. ZOFRAN [Suspect]
     Dosage: 1 TAB
     Route: 048
     Dates: start: 20120403, end: 20120404
  4. FLUOROURACIL [Suspect]
     Indication: CHEMOTHERAPY
     Dosage: 1 ADM
     Route: 042
     Dates: start: 20120403
  5. EMEND [Suspect]
     Dosage: 1 GEL
     Route: 048
     Dates: start: 20120404, end: 20120405
  6. PRIMPERAN TAB [Suspect]
     Indication: PREMEDICATION
     Dosage: 1 ADM
     Route: 042
     Dates: start: 20120403
  7. EPIRUBICIN [Suspect]
     Indication: CHEMOTHERAPY
     Route: 042
     Dates: start: 20120403
  8. EMEND [Suspect]
     Dosage: 1 GEL
     Route: 048
     Dates: start: 20120403, end: 20120403

REACTIONS (4)
  - ASTHENIA [None]
  - HAEMATURIA [None]
  - POLLAKIURIA [None]
  - MOTOR DYSFUNCTION [None]
